FAERS Safety Report 8365635-2 (Version None)
Quarter: 2012Q2

REPORT INFORMATION
  Report Type: 
  Country: None (occurrence: None)
  Receive Date: 20120516
  Receipt Date: 20120508
  Transmission Date: 20120825
  Serious: Yes (Life-Threatening, Hospitalization, Disabling, Other)
  Sender: FDA-Public Use
  Company Number: ES-BIOGENIDEC-2012BI004235

PATIENT
  Age: 53 Year
  Sex: Male
  Weight: 75 kg

DRUGS (10)
  1. TYSABRI [Suspect]
     Indication: MULTIPLE SCLEROSIS
     Route: 042
     Dates: start: 20090416, end: 20111202
  2. OMEPRAZOLE [Concomitant]
     Route: 048
     Dates: start: 20120131
  3. VANCOMYCIN [Concomitant]
  4. METAMIZOL [Concomitant]
  5. DEXAMETHASONE [Concomitant]
     Route: 048
     Dates: start: 20120131
  6. FUROSEMIDE [Concomitant]
     Route: 048
     Dates: start: 20120131
  7. ACETAMINOPHEN [Concomitant]
     Route: 048
     Dates: start: 20120131
  8. LORAZEPAM [Concomitant]
     Route: 048
     Dates: start: 20120131
  9. LEVETIRACETAM [Concomitant]
  10. CEFTAZIDIME [Concomitant]

REACTIONS (1)
  - GLIOBLASTOMA [None]
